FAERS Safety Report 6875642-4 (Version None)
Quarter: 2010Q3

REPORT INFORMATION
  Report Type: 
  Country: None (occurrence: None)
  Receive Date: 20100727
  Receipt Date: 20100719
  Transmission Date: 20110219
  Serious: Yes (Other)
  Sender: FDA-Public Use
  Company Number: CA-ASTRAZENECA-2010SE33587

PATIENT
  Age: 39 Year
  Sex: Male
  Weight: 85.3 kg

DRUGS (1)
  1. SYMBICORT [Suspect]
     Dosage: 1 DOSAGE FORM
     Route: 055

REACTIONS (3)
  - PAIN [None]
  - SURGERY [None]
  - TENDON RUPTURE [None]
